FAERS Safety Report 21385635 (Version 3)
Quarter: 2023Q1

REPORT INFORMATION
  Report Type: Report from Study
  Country: PE (occurrence: PE)
  Receive Date: 20220928
  Receipt Date: 20230209
  Transmission Date: 20230417
  Serious: Yes (Other)
  Sender: FDA-Public Use
  Company Number: PE-NOVARTISPH-PHHY2019PE174225

PATIENT
  Age: 63 Year
  Sex: Female
  Weight: 70 kg

DRUGS (8)
  1. KISQALI [Suspect]
     Active Substance: RIBOCICLIB
     Indication: Breast cancer metastatic
     Dosage: 600 MG, QD (ONCE A DAILY)
     Route: 048
     Dates: start: 20190417, end: 20190507
  2. KISQALI [Suspect]
     Active Substance: RIBOCICLIB
     Dosage: UNK UNK, QD (DOSE: 3)
     Route: 065
     Dates: start: 20190417
  3. KISQALI [Suspect]
     Active Substance: RIBOCICLIB
     Dosage: 200 MG, QD (1 DAILY TABLET 200 MG AND RESTING 7 DAYS.)
     Route: 048
     Dates: start: 20190417
  4. KISQALI [Suspect]
     Active Substance: RIBOCICLIB
     Dosage: 200 MG/KG, QD
     Route: 048
     Dates: start: 20190418
  5. KISQALI [Suspect]
     Active Substance: RIBOCICLIB
     Dosage: 200 MG, QD
     Route: 065
     Dates: start: 20210417
  6. KISQALI [Suspect]
     Active Substance: RIBOCICLIB
     Dosage: 400 MG, QD
     Route: 048
     Dates: start: 20190516, end: 20190707
  7. KISQALI [Suspect]
     Active Substance: RIBOCICLIB
     Dosage: UNK, (2)
     Route: 065
  8. KISQALI [Suspect]
     Active Substance: RIBOCICLIB
     Dosage: 200 MG, Q24H (1 OF 200MG)
     Route: 048

REACTIONS (6)
  - Immunodeficiency [Unknown]
  - Full blood count abnormal [Recovering/Resolving]
  - Platelet count decreased [Not Recovered/Not Resolved]
  - White blood cell count decreased [Unknown]
  - Influenza [Recovering/Resolving]
  - Inappropriate schedule of product administration [Unknown]

NARRATIVE: CASE EVENT DATE: 20190701
